FAERS Safety Report 5092344-8 (Version None)
Quarter: 2006Q3

REPORT INFORMATION
  Report Type: 
  Country: None (occurrence: None)
  Receive Date: 20060825
  Receipt Date: 20060809
  Transmission Date: 20061208
  Serious: Yes (Disabling, Other)
  Sender: FDA-Public Use
  Company Number: US200607002932

PATIENT
  Age: 49 Year
  Sex: Female
  Weight: 80.3 kg

DRUGS (4)
  1. CYMBALTA [Suspect]
     Indication: PAIN
     Dosage: 60 MG
     Dates: start: 20060119, end: 20060310
  2. TRAZODONE HCL [Concomitant]
  3. ARTHROTEC [Concomitant]
  4. COLACE (DOCUSATE SODIUM) [Concomitant]

REACTIONS (12)
  - ALANINE AMINOTRANSFERASE INCREASED [None]
  - ASPARTATE AMINOTRANSFERASE INCREASED [None]
  - BILIARY TRACT DISORDER [None]
  - CHOLESTASIS [None]
  - DECREASED APPETITE [None]
  - INTERNATIONAL NORMALISED RATIO DECREASED [None]
  - JAUNDICE [None]
  - NAUSEA [None]
  - PARAESTHESIA [None]
  - PROTHROMBIN TIME SHORTENED [None]
  - PRURITUS [None]
  - SKIN BURNING SENSATION [None]
